FAERS Safety Report 4518201-0 (Version None)
Quarter: 2004Q4

REPORT INFORMATION
  Report Type: 
  Country: None (occurrence: None)
  Receive Date: 20041130
  Receipt Date: 20041119
  Transmission Date: 20050328
  Serious: Yes (Other)
  Sender: FDA-Public Use
  Company Number: 25679

PATIENT
  Age: 60 Year
  Sex: Male

DRUGS (3)
  1. ALDARA [Suspect]
     Indication: DERMATITIS
     Dosage: (6 TOTAL), TOPICAL
     Route: 061
     Dates: start: 20040901, end: 20040901
  2. UNSPECIFIED ACE INHIBITOR [Suspect]
  3. LIPITOR [Concomitant]

REACTIONS (10)
  - DERMATITIS [None]
  - ECZEMA [None]
  - HYPERSENSITIVITY [None]
  - IMPETIGO [None]
  - INFLUENZA LIKE ILLNESS [None]
  - MALAISE [None]
  - MYALGIA [None]
  - PITYRIASIS RUBRA PILARIS [None]
  - PYREXIA [None]
  - RASH PSORIAFORM [None]
